FAERS Safety Report 5854614-2 (Version None)
Quarter: 2008Q3

REPORT INFORMATION
  Report Type: 
  Country: None (occurrence: None)
  Receive Date: 20080822
  Receipt Date: 20071030
  Transmission Date: 20090109
  Serious: No
  Sender: FDA-Public Use
  Company Number: US-ABBOTT-07P-163-0423134-00

PATIENT
  Sex: Female
  Weight: 90.8 kg

DRUGS (5)
  1. SYNTHROID [Suspect]
     Indication: DRUG USE FOR UNKNOWN INDICATION
     Route: 048
     Dates: start: 19650101, end: 19680101
  2. SYNTHROID [Suspect]
     Route: 048
     Dates: start: 20000101
  3. UNKNOWN MEDICATION [Suspect]
     Indication: DRUG USE FOR UNKNOWN INDICATION
     Route: 048
     Dates: start: 20000101
  4. LISINOPRIL [Concomitant]
     Indication: BLOOD PRESSURE
  5. GLYPERIDE [Concomitant]
     Indication: DRUG USE FOR UNKNOWN INDICATION

REACTIONS (3)
  - DRUG INEFFECTIVE [None]
  - EYE DISCHARGE [None]
  - SNEEZING [None]
